FAERS Safety Report 4849292-5 (Version None)
Quarter: 2005Q4

REPORT INFORMATION
  Report Type: 
  Country: None (occurrence: None)
  Receive Date: 20051209
  Receipt Date: 20051130
  Transmission Date: 20060501
  Serious: Yes (Hospitalization)
  Sender: FDA-Public Use
  Company Number: US-JNJFOC-20050706091

PATIENT
  Sex: Female
  Weight: 63.5 kg

DRUGS (28)
  1. DURAGESIC-100 [Suspect]
     Route: 062
  2. DURAGESIC-100 [Suspect]
     Route: 062
  3. DURAGESIC-100 [Suspect]
     Route: 062
  4. LIPRAM [Concomitant]
     Dosage: WITH MEALS
     Route: 048
  5. SOMA [Concomitant]
  6. TRIAMCINOLONE [Concomitant]
     Dosage: APPLY TWICE DAILY
     Route: 061
  7. NEURONTIN [Concomitant]
     Route: 048
  8. ARMOUR [Concomitant]
     Route: 048
  9. DAPSONE [Concomitant]
     Route: 048
  10. DILTIAZEM [Concomitant]
     Route: 048
  11. LORATADINE [Concomitant]
     Route: 048
  12. ALDACTONE [Concomitant]
     Route: 048
  13. FOSAMAX [Concomitant]
     Route: 048
  14. COMPAZINE [Concomitant]
     Dosage: AS NEEDED
     Route: 054
  15. AMBIEN [Concomitant]
     Dosage: AS NEEDED
     Route: 048
  16. KLONOPIN [Concomitant]
     Route: 048
  17. EFFEXOR [Concomitant]
     Route: 048
  18. LOMOTIL [Concomitant]
     Route: 048
  19. LOMOTIL [Concomitant]
     Dosage: 1-2 FOUR TIMES A DAY AS NEEDED
     Route: 048
  20. MIACALCIN [Concomitant]
     Dosage: 200 IU SPRAY, 1 SPRAY IN NOSE, ALTERNATE SIDES DAILY, ONCE A DAY.
     Route: 045
  21. MEPHYTON [Concomitant]
     Route: 048
  22. PROVERA [Concomitant]
     Route: 048
  23. ELOCON [Concomitant]
     Route: 061
  24. KETOCONAZOLE [Concomitant]
     Indication: RASH
     Dosage: AS NEEDED
     Route: 061
  25. SUDAFED 12 HOUR [Concomitant]
  26. PERCOCET [Concomitant]
     Route: 048
  27. PERCOCET [Concomitant]
     Dosage: 5/325 5 TIMES A DAY AS NEEDED.
     Route: 048
  28. CALCIUM CARBONATE [Concomitant]

REACTIONS (2)
  - FALL [None]
  - HIP FRACTURE [None]
